FAERS Safety Report 17740578 (Version 4)
Quarter: 2021Q1

REPORT INFORMATION
  Report Type: Report from Study
  Country: DE (occurrence: DE)
  Receive Date: 20200504
  Receipt Date: 20210316
  Transmission Date: 20210419
  Serious: Yes (Hospitalization)
  Sender: FDA-Public Use
  Company Number: DE-ROCHE-2591786

PATIENT
  Age: 63 Year
  Sex: Female
  Weight: 67.7 kg

DRUGS (9)
  1. CYCLOPHOSPHAMIDE. [Suspect]
     Active Substance: CYCLOPHOSPHAMIDE
     Indication: BREAST CANCER
     Dosage: MOST RECENT DOSE 1056 MG OF CYCLOPHOSPHAMIDE PRIOR TO EVENT ONSET: 15/APR/2020
     Route: 042
     Dates: start: 20200304
  2. UROMITEXAN [Concomitant]
     Active Substance: MESNA
     Route: 048
     Dates: start: 20200304, end: 20200415
  3. L?THYROX [Concomitant]
     Active Substance: LEVOTHYROXINE SODIUM
     Dates: start: 2015
  4. RAMIPRIL. [Concomitant]
     Active Substance: RAMIPRIL
     Indication: HYPERTONIA
     Route: 048
     Dates: start: 2014
  5. DEXAMETHASONE. [Concomitant]
     Active Substance: DEXAMETHASONE
     Route: 048
     Dates: start: 20200305, end: 20200415
  6. DOXORUBICIN [Suspect]
     Active Substance: DOXORUBICIN
     Indication: BREAST CANCER
     Dosage: MOST RECENT DOSE OF DOXORUBICIN PRIOR TO EVENT ONSET: 15/APR/2020 106 MG
     Route: 042
     Dates: start: 20200304
  7. AKYNZEO [Concomitant]
     Active Substance: NETUPITANT\PALONOSETRON HYDROCHLORIDE
     Indication: NAUSEA
     Route: 048
     Dates: start: 20200304, end: 20200415
  8. DEXAMETHASONE. [Concomitant]
     Active Substance: DEXAMETHASONE
     Indication: NAUSEA
     Route: 042
     Dates: start: 20200304
  9. ATEZOLIZUMAB. [Suspect]
     Active Substance: ATEZOLIZUMAB
     Indication: BREAST CANCER
     Dosage: MOST RECENT DOSE OF ATEZOLIZUMAB PRIOR TO EVENT ONSET: 15/APR/2020 (840 MG)
     Route: 041
     Dates: start: 20200304

REACTIONS (1)
  - Ejection fraction decreased [Not Recovered/Not Resolved]

NARRATIVE: CASE EVENT DATE: 20200422
